FAERS Safety Report 5048172-2 (Version None)
Quarter: 2006Q3

REPORT INFORMATION
  Report Type: 
  Country: None (occurrence: None)
  Receive Date: 20060711
  Receipt Date: 20050624
  Transmission Date: 20061208
  Serious: Yes (Hospitalization)
  Sender: FDA-Public Use
  Company Number: US-ROCHE-408803

PATIENT
  Age: 57 Year
  Sex: Female

DRUGS (14)
  1. PEG-INTERFERON ALFA 2A (RO 25-8310) [Suspect]
     Route: 058
     Dates: start: 20041110, end: 20050608
  2. PEG-INTERFERON ALFA 2A (RO 25-8310) [Suspect]
     Route: 058
     Dates: start: 20050614, end: 20050719
  3. RIBAVIRIN [Suspect]
     Route: 048
     Dates: start: 20041110, end: 20050608
  4. RIBAVIRIN [Suspect]
     Route: 048
     Dates: start: 20050614, end: 20050719
  5. TYLENOL (CAPLET) [Concomitant]
     Dates: start: 20041110
  6. GLIPIZIDE [Concomitant]
     Dates: start: 20050707
  7. TENORMIN [Concomitant]
     Indication: HYPERTENSION
     Route: 048
     Dates: start: 20050725
  8. GLYBURIDE [Concomitant]
  9. CHROMAGEN [Concomitant]
  10. ISONIAZID [Concomitant]
     Route: 048
     Dates: start: 20050818
  11. PIRAZINAMIDE [Concomitant]
     Dates: start: 20050818
  12. ETHAMBUTOL HCL [Concomitant]
     Dates: start: 20050818
  13. RIFAMPIN [Concomitant]
     Dates: start: 20050818
  14. VITAMIN B6 [Concomitant]
     Dates: start: 20050818

REACTIONS (41)
  - AMNESIA [None]
  - ANOREXIA [None]
  - BLOOD ALBUMIN DECREASED [None]
  - BLOOD ALKALINE PHOSPHATASE INCREASED [None]
  - BLOOD BILIRUBIN DECREASED [None]
  - BLOOD CALCIUM DECREASED [None]
  - BLOOD CHLORIDE DECREASED [None]
  - BLOOD CREATININE DECREASED [None]
  - BLOOD GLUCOSE INCREASED [None]
  - BLOOD MAGNESIUM DECREASED [None]
  - BLOOD PHOSPHORUS DECREASED [None]
  - BLOOD POTASSIUM DECREASED [None]
  - BLOOD PRESSURE SYSTOLIC INCREASED [None]
  - BLOOD SODIUM DECREASED [None]
  - BLOOD UREA DECREASED [None]
  - C-REACTIVE PROTEIN INCREASED [None]
  - CARBOHYDRATE ANTIGEN 125 INCREASED [None]
  - CHEST DISCOMFORT [None]
  - FATIGUE [None]
  - FLUSHING [None]
  - HAEMATOCRIT DECREASED [None]
  - HAEMOGLOBIN DECREASED [None]
  - HAPTOGLOBIN INCREASED [None]
  - HYPONATRAEMIA [None]
  - LEUKOCYTOSIS [None]
  - MENTAL STATUS CHANGES [None]
  - METABOLIC ENCEPHALOPATHY [None]
  - MYOCARDIAL INFARCTION [None]
  - MYOCARDIAL ISCHAEMIA [None]
  - OVARIAN CYST [None]
  - PALLOR [None]
  - PERITONEAL TUBERCULOSIS [None]
  - POOR PERIPHERAL CIRCULATION [None]
  - PROTEIN TOTAL DECREASED [None]
  - PYREXIA [None]
  - RED BLOOD CELL COUNT DECREASED [None]
  - SERUM FERRITIN INCREASED [None]
  - SINUS TACHYCARDIA [None]
  - STARING [None]
  - SUPRAVENTRICULAR EXTRASYSTOLES [None]
  - WEIGHT DECREASED [None]
